FAERS Safety Report 22870547 (Version 2)
Quarter: 2024Q2

REPORT INFORMATION
  Report Type: Report from Study
  Country: DE (occurrence: DE)
  Receive Date: 20230828
  Receipt Date: 20240516
  Transmission Date: 20240716
  Serious: Yes (Hospitalization)
  Sender: FDA-Public Use
  Company Number: DE-ABBVIE-5383430

PATIENT
  Age: 30 Year
  Sex: Female

DRUGS (1)
  1. SKYRIZI [Suspect]
     Active Substance: RISANKIZUMAB-RZAA
     Indication: Psoriasis
     Route: 058
     Dates: start: 202105, end: 2022

REACTIONS (2)
  - Gastric operation [Recovered/Resolved]
  - Nasal operation [Recovered/Resolved]

NARRATIVE: CASE EVENT DATE: 20221101
